FAERS Safety Report 8256673-9 (Version None)
Quarter: 2012Q2

REPORT INFORMATION
  Report Type: 
  Country: None (occurrence: None)
  Receive Date: 20120403
  Receipt Date: 20120327
  Transmission Date: 20120825
  Serious: Yes (Other)
  Sender: FDA-Public Use
  Company Number: GB-B.I. PHARMACEUTICALS,INC./RIDGEFIELD-2012-UK-00445UK

PATIENT
  Age: 58 Year
  Sex: Female

DRUGS (7)
  1. CODEINE SULFATE [Suspect]
     Indication: DIARRHOEA
     Dosage: 60 MG
     Route: 048
  2. ASPIRIN [Concomitant]
     Indication: ANTIPLATELET THERAPY
     Dosage: 75 MG
     Route: 048
  3. PREDNISOLONE [Concomitant]
     Indication: AUTOIMMUNE DISORDER
     Dosage: 5 MG
     Route: 048
  4. FOLIC ACID [Concomitant]
     Indication: FOLATE DEFICIENCY
     Dosage: 5 MG
     Route: 048
  5. PERSANTIN [Suspect]
     Indication: PROPHYLAXIS
     Dosage: 200 MG
     Route: 048
     Dates: start: 20120101
  6. CALCIUM CARBONATE [Concomitant]
     Indication: OSTEOARTHRITIS
     Route: 048
  7. HYDROXOCOBALAMIN [Concomitant]

REACTIONS (2)
  - DYSARTHRIA [None]
  - FEELING ABNORMAL [None]
